FAERS Safety Report 10606843 (Version 1)
Quarter: 2014Q4

REPORT INFORMATION
  Report Type: Spontaneous
  Country: US (occurrence: None)
  Receive Date: 20141124
  Receipt Date: 20141124
  Transmission Date: 20150529
  Serious: Yes (Hospitalization)
  Sender: FDA-Public Use
  Company Number: None

PATIENT
  Age: 67 Year
  Sex: Female
  Weight: 69.8 kg

DRUGS (1)
  1. TAXOL [Suspect]
     Active Substance: PACLITAXEL
     Dosage: PARTIALLY INFUSED, THEN DISCONTINUED.

REACTIONS (7)
  - Nausea [None]
  - Hypotension [None]
  - Back pain [None]
  - Chest discomfort [None]
  - Flushing [None]
  - Vomiting [None]
  - Hypersensitivity [None]

NARRATIVE: CASE EVENT DATE: 20141118
